FAERS Safety Report 10214352 (Version 1)
Quarter: 2014Q2

REPORT INFORMATION
  Report Type: Spontaneous
  Country: CN (occurrence: CN)
  Receive Date: 20140603
  Receipt Date: 20140603
  Transmission Date: 20141212
  Serious: Yes (Other)
  Sender: FDA-Public Use
  Company Number: CN-ASTELLAS-2014JP007973AA

PATIENT
  Sex: 0

DRUGS (1)
  1. PROTOPIC [Suspect]
     Indication: LEUKODERMA
     Route: 061
     Dates: start: 20140519, end: 20140520

REACTIONS (2)
  - Anaphylactic reaction [Unknown]
  - Off label use [Recovered/Resolved]
